FAERS Safety Report 7259220-3 (Version None)
Quarter: 2011Q1

REPORT INFORMATION
  Report Type: 
  Country: None (occurrence: None)
  Receive Date: 20110129
  Receipt Date: 20100811
  Transmission Date: 20110831
  Serious: No
  Sender: FDA-Public Use
  Company Number: US-ABBOTT-10P-163-0664091-00

PATIENT
  Sex: Female
  Weight: 57.204 kg

DRUGS (4)
  1. ASACOL [Concomitant]
     Indication: PRODUCT USED FOR UNKNOWN INDICATION
  2. METHOTREXATE [Concomitant]
     Indication: CROHN'S DISEASE
     Dates: start: 20100722
  3. HUMIRA [Suspect]
     Indication: CROHN'S DISEASE
     Dates: start: 20100105, end: 20100623
  4. PRESTIQUE [Concomitant]
     Indication: DEPRESSION

REACTIONS (2)
  - RASH [None]
  - ARTHRALGIA [None]
